FAERS Safety Report 12395528 (Version 1)
Quarter: 2016Q2

REPORT INFORMATION
  Report Type: Spontaneous
  Country: US (occurrence: US)
  Receive Date: 20160523
  Receipt Date: 20160523
  Transmission Date: 20160815
  Serious: No
  Sender: FDA-Public Use
  Company Number: US-ENDO PHARMACEUTICALS INC.-2016-002130

PATIENT
  Age: 14 Year
  Sex: Female
  Weight: 56.75 kg

DRUGS (7)
  1. SUPPRELIN LA [Suspect]
     Active Substance: HISTRELIN ACETATE
     Indication: GENDER DYSPHORIA
     Route: 058
     Dates: start: 20160226
  2. BENADRYL [Concomitant]
     Active Substance: DIPHENHYDRAMINE HYDROCHLORIDE
     Indication: ATTENTION DEFICIT/HYPERACTIVITY DISORDER
  3. ESCITALOPRAM [Concomitant]
     Active Substance: ESCITALOPRAM OXALATE
     Indication: DEPRESSION
  4. DEPAKOTE [Concomitant]
     Active Substance: DIVALPROEX SODIUM
     Indication: BIPOLAR DISORDER
  5. MVI [Concomitant]
     Active Substance: VITAMINS
     Indication: ROUTINE HEALTH MAINTENANCE
  6. SUPPRELIN LA [Suspect]
     Active Substance: HISTRELIN ACETATE
     Indication: PRECOCIOUS PUBERTY
  7. IRON ER [Concomitant]
     Indication: IRON DEFICIENCY ANAEMIA

REACTIONS (4)
  - Implant site pustules [Recovered/Resolved]
  - Implant site reaction [Recovered/Resolved]
  - Off label use [Not Recovered/Not Resolved]
  - Implant site warmth [Recovered/Resolved]

NARRATIVE: CASE EVENT DATE: 2016
